FAERS Safety Report 9175010 (Version 2)
Quarter: 2013Q2

REPORT INFORMATION
  Report Type: Spontaneous
  Country: US (occurrence: US)
  Receive Date: 20130320
  Receipt Date: 20130417
  Transmission Date: 20140414
  Serious: Yes (Other)
  Sender: FDA-Public Use
  Company Number: US-JNJFOC-20130312437

PATIENT
  Age: 35 Year
  Sex: Female

DRUGS (2)
  1. ZYTIGA [Suspect]
     Indication: ACCIDENTAL EXPOSURE TO PRODUCT
     Route: 048
  2. ZYRTEC [Concomitant]
     Indication: SEASONAL ALLERGY
     Route: 065
     Dates: start: 2003

REACTIONS (4)
  - Abortion spontaneous [Recovered/Resolved]
  - Abortion spontaneous [Recovered/Resolved]
  - Accidental exposure to product [Recovered/Resolved]
  - Exposure during pregnancy [Recovered/Resolved]
